FAERS Safety Report 10262154 (Version 1)
Quarter: 2014Q2

REPORT INFORMATION
  Report Type: Spontaneous
  Country: US (occurrence: US)
  Receive Date: 20140626
  Receipt Date: 20140626
  Transmission Date: 20141212
  Serious: Yes (Death)
  Sender: FDA-Public Use
  Company Number: US-GLAXOSMITHKLINE-A1078493A

PATIENT
  Age: 54 Year
  Sex: Male

DRUGS (1)
  1. HYCAMTIN [Suspect]
     Indication: LUNG NEOPLASM MALIGNANT
     Dosage: 1MG UNKNOWN
     Dates: start: 20140605

REACTIONS (1)
  - Death [Fatal]
